FAERS Safety Report 19426031 (Version 4)
Quarter: 2022Q3

REPORT INFORMATION
  Report Type: Other
  Country: JP (occurrence: JP)
  Receive Date: 20210617
  Receipt Date: 20220706
  Transmission Date: 20221027
  Serious: Yes (Other)
  Sender: FDA-Public Use
  Company Number: JP-CHUGAI-A2021002953ROCHE

PATIENT
  Age: 70 Year
  Sex: Male
  Weight: 72.6 kg

DRUGS (2)
  1. ENTRECTINIB [Suspect]
     Active Substance: ENTRECTINIB
     Indication: Non-small cell lung cancer
     Route: 048
     Dates: start: 20201224, end: 20210616
  2. ENTRECTINIB [Suspect]
     Active Substance: ENTRECTINIB
     Dosage: MOAT RECENT DOSE ON 13/JAN/2022
     Route: 048
     Dates: start: 20210617

REACTIONS (3)
  - Renal disorder [Not Recovered/Not Resolved]
  - Visual impairment [Recovering/Resolving]
  - Trismus [Not Recovered/Not Resolved]

NARRATIVE: CASE EVENT DATE: 20201228
